FAERS Safety Report 12915943 (Version 1)
Quarter: 2016Q4

REPORT INFORMATION
  Report Type: Spontaneous
  Country: US (occurrence: US)
  Receive Date: 20161107
  Receipt Date: 20161107
  Transmission Date: 20170207
  Serious: No
  Sender: FDA-Public Use
  Company Number: US-ACCORD-040413

PATIENT
  Age: 16 Year
  Sex: Female
  Weight: 59.09 kg

DRUGS (1)
  1. ESCITALOPRAM [Suspect]
     Active Substance: ESCITALOPRAM OXALATE
     Indication: DEPRESSION
     Dosage: STRENGTH: 10 MG?2.5 MG ONCE DAILY AT BED TIME, THEN INCREASED TO 5 MG, 10 MG AND THEN 15 MG
     Route: 048

REACTIONS (3)
  - Hypopnoea [Not Recovered/Not Resolved]
  - Chest discomfort [Not Recovered/Not Resolved]
  - Nasopharyngitis [Not Recovered/Not Resolved]

NARRATIVE: CASE EVENT DATE: 20160501
